FAERS Safety Report 5848214-8 (Version None)
Quarter: 2008Q3

REPORT INFORMATION
  Report Type: 
  Country: None (occurrence: None)
  Receive Date: 20080818
  Receipt Date: 20080808
  Transmission Date: 20090109
  Serious: Yes (Other)
  Sender: FDA-Public Use
  Company Number: B0533176A

PATIENT
  Age: 51 Year
  Sex: Male

DRUGS (9)
  1. EPIVIR [Suspect]
     Route: 048
     Dates: start: 20060522
  2. ZITHROMAX [Suspect]
     Dosage: 1200MG WEEKLY
     Route: 048
     Dates: start: 20060302
  3. PENTAMIDINE [Suspect]
     Indication: DRUG USE FOR UNKNOWN INDICATION
     Route: 055
     Dates: start: 20060510
  4. GANCICLOVIR [Suspect]
     Route: 031
     Dates: start: 20070222, end: 20070322
  5. VALGANCICLOVIR HCL [Suspect]
     Dosage: 900MG PER DAY
     Route: 048
     Dates: start: 20070323, end: 20070327
  6. ZERIT [Concomitant]
     Route: 048
     Dates: start: 20060522
  7. STOCRIN [Concomitant]
     Route: 048
     Dates: start: 20060522
  8. GANCICLOVIR [Concomitant]
     Route: 065
     Dates: start: 20060524, end: 20060712
  9. ETHAMBUTOL HCL [Concomitant]
     Indication: MYCOBACTERIUM AVIUM COMPLEX INFECTION
     Dosage: 750MG PER DAY
     Route: 065
     Dates: start: 20060609

REACTIONS (3)
  - BONE MARROW FAILURE [None]
  - NEUTROPHIL COUNT DECREASED [None]
  - WHITE BLOOD CELL COUNT DECREASED [None]
